FAERS Safety Report 19577780 (Version 1)
Quarter: 2021Q3

REPORT INFORMATION
  Report Type: Report from Study
  Country: JP (occurrence: JP)
  Receive Date: 20210719
  Receipt Date: 20210719
  Transmission Date: 20211014
  Serious: Yes (Disabling)
  Sender: FDA-Public Use
  Company Number: JP-BIOGEN-2020BI00960553

PATIENT
  Age: 39 Year
  Sex: Female
  Weight: 50 kg

DRUGS (3)
  1. TECFIDERA [Suspect]
     Active Substance: DIMETHYL FUMARATE
     Route: 048
     Dates: start: 20190620, end: 20201216
  2. TECFIDERA [Suspect]
     Active Substance: DIMETHYL FUMARATE
     Indication: RELAPSING-REMITTING MULTIPLE SCLEROSIS
     Route: 048
     Dates: start: 20190606, end: 20190612
  3. TECFIDERA [Suspect]
     Active Substance: DIMETHYL FUMARATE
     Route: 048
     Dates: start: 20190613, end: 20190619

REACTIONS (4)
  - Multiple sclerosis [Unknown]
  - Therapeutic product effect incomplete [Unknown]
  - Multiple sclerosis relapse [Recovered/Resolved with Sequelae]
  - Flushing [Recovered/Resolved]

NARRATIVE: CASE EVENT DATE: 20190718
